FAERS Safety Report 5908057-3 (Version None)
Quarter: 2008Q4

REPORT INFORMATION
  Report Type: 
  Country: None (occurrence: None)
  Receive Date: 20081003
  Receipt Date: 20080922
  Transmission Date: 20090506
  Serious: Yes (Hospitalization)
  Sender: FDA-Public Use
  Company Number: DE-PFIZER INC-2008080100

PATIENT
  Age: 15 Year
  Sex: Male
  Weight: 46 kg

DRUGS (2)
  1. GENOTROPIN [Suspect]
     Indication: GROWTH HORMONE DEFICIENCY
     Dates: start: 20061215
  2. LEUPROLIDE ACETATE [Concomitant]
     Route: 030
     Dates: start: 20041117, end: 20080620

REACTIONS (1)
  - LYMPHADENITIS [None]
